FAERS Safety Report 11148357 (Version 1)
Quarter: 2015Q2

REPORT INFORMATION
  Report Type: Spontaneous
  Country: GB (occurrence: GB)
  Receive Date: 20150529
  Receipt Date: 20150529
  Transmission Date: 20150821
  Serious: Yes (Other)
  Sender: FDA-Public Use
  Company Number: GB-PFIZER INC-2015153367

PATIENT
  Age: 6 Week
  Weight: 4 kg

DRUGS (10)
  1. AMIODARONE HCL [Suspect]
     Active Substance: AMIODARONE HYDROCHLORIDE
     Dosage: 5 ?G/KG/MIN, UNK
     Route: 065
  2. AMIODARONE [Suspect]
     Active Substance: AMIODARONE
     Indication: NODAL ARRHYTHMIA
     Dosage: INFUSION OF 15 MCG/ KG/MIN
  3. ESMOLOL [Suspect]
     Active Substance: ESMOLOL HYDROCHLORIDE
     Dosage: 50 ?G/KG, UNK
     Route: 065
  4. PROPRANOLOL [Suspect]
     Active Substance: PROPRANOLOL\PROPRANOLOL HYDROCHLORIDE
     Indication: ARRHYTHMIA
     Dosage: UNK
     Route: 065
  5. AMIODARONE HCL [Suspect]
     Active Substance: AMIODARONE HYDROCHLORIDE
     Dosage: 5 MG/KG, UNK
     Route: 065
  6. DIGOXIN. [Suspect]
     Active Substance: DIGOXIN
     Indication: ARRHYTHMIA
     Dosage: UNK
     Route: 065
  7. AMIODARONE HCL [Suspect]
     Active Substance: AMIODARONE HYDROCHLORIDE
     Indication: NODAL ARRHYTHMIA
     Dosage: 5 MG/KG, SINGLE
     Route: 065
  8. DIGOXIN. [Suspect]
     Active Substance: DIGOXIN
     Dosage: 8 ?G/KG, SINGLE
     Route: 065
  9. ESMOLOL [Suspect]
     Active Substance: ESMOLOL HYDROCHLORIDE
     Indication: ARRHYTHMIA
     Dosage: 200 MCG/ KG/MIN
     Route: 065
  10. AMIODARONE HCL [Suspect]
     Active Substance: AMIODARONE HYDROCHLORIDE
     Dosage: 5 MG/KG, SINGLE
     Route: 065

REACTIONS (3)
  - Heart rate decreased [Recovered/Resolved]
  - Circulatory collapse [Recovered/Resolved]
  - Drug administered to patient of inappropriate age [Unknown]
